FAERS Safety Report 9520805 (Version 1)
Quarter: 2013Q1

REPORT INFORMATION
  Report Type: Spontaneous
  Country: US (occurrence: None)
  Receive Date: 20130305
  Receipt Date: 20130305
  Transmission Date: 20140127
  Serious: Yes (Other)
  Sender: FDA-Public Use
  Company Number: 163-21880-11021022

PATIENT
  Age: 59 Year
  Sex: Female
  Weight: 58.97 kg

DRUGS (13)
  1. REVLIMID [Suspect]
     Indication: PLASMA CELL MYELOMA
     Route: 048
     Dates: start: 20110111, end: 20110126
  2. DECADRON (DEXAMETHASONE) (4 MILLIGRAM, TABLETS) [Concomitant]
  3. RED BLOOD CELLS (RED BLOOD CELLS) [Concomitant]
  4. LISINOPRIL (LISINOPRIL) (40 MILLIGRAM, TABLETS) [Concomitant]
  5. DIOVAN (VALSARTAN) (320 MILLIGRAM, TABLETS) [Concomitant]
  6. ACTOS (PIOGLITAZONE) (15 MILLIGRAM, TABLETS) [Concomitant]
  7. JANUVIA (SITAGLIPTIN PHOSPHATE) (100 MILLIGRAM, TABLETS) [Concomitant]
  8. METFORMIN HCL (METFORMIN HYDROCHLORIDE) (850 MILLIGRAM, TABLETS) [Concomitant]
  9. MULTIVITAMINS (MULTIVITAMINS) (TABLETS) [Concomitant]
  10. CALCIUM 600 (600 MILLIGRAM, TABLETS) [Concomitant]
  11. VITAMIN C (ASCORBIC ACID) (500 MILLIGRAM, TABLETS) [Concomitant]
  12. ALENDRONATE SODIUM (ALENDRONATE SODIUM) (70 MILLIGRAM, TABLETS) [Concomitant]
  13. ASA (ACETYLSALICYLIC ACID) [Concomitant]

REACTIONS (6)
  - Anaemia [None]
  - Pyrexia [None]
  - Pruritus generalised [None]
  - Hot flush [None]
  - Burning sensation [None]
  - Dysgeusia [None]
